FAERS Safety Report 19935974 (Version 1)
Quarter: 2021Q4

REPORT INFORMATION
  Report Type: Report from Study
  Country: US (occurrence: US)
  Receive Date: 20211008
  Receipt Date: 20211008
  Transmission Date: 20220303
  Serious: Yes (Hospitalization)
  Sender: FDA-Public Use
  Company Number: US-EISAI MEDICAL RESEARCH-EC-2021-099687

PATIENT
  Age: 71 Year
  Sex: Female

DRUGS (4)
  1. LENVIMA [Suspect]
     Active Substance: LENVATINIB
     Indication: Endometrial cancer
     Route: 048
     Dates: start: 20210901, end: 202109
  2. AMLODIPINE [Suspect]
     Active Substance: AMLODIPINE BESYLATE
     Indication: Product used for unknown indication
     Dosage: DOSE AND FREQUENCY UNKNOWN
  3. PERCOCET [Suspect]
     Active Substance: ACETAMINOPHEN\OXYCODONE HYDROCHLORIDE
     Indication: Product used for unknown indication
     Dosage: DOSE AND FREQUENCY UNKNOWN
  4. KEYTRUDA [Concomitant]
     Active Substance: PEMBROLIZUMAB

REACTIONS (10)
  - Oedema peripheral [Unknown]
  - Blood pressure increased [Unknown]
  - Bite [Unknown]
  - Tongue disorder [Unknown]
  - Headache [Unknown]
  - Abdominal pain upper [Unknown]
  - Arthralgia [Unknown]
  - Back pain [Unknown]
  - Mental impairment [Unknown]
  - Skin ulcer [Unknown]

NARRATIVE: CASE EVENT DATE: 20210901
